FAERS Safety Report 24133951 (Version 1)
Quarter: 2024Q3

REPORT INFORMATION
  Report Type: Spontaneous
  Country: CN (occurrence: CN)
  Receive Date: 20240724
  Receipt Date: 20240724
  Transmission Date: 20241016
  Serious: Yes (Life-Threatening, Other)
  Sender: MERCK
  Company Number: CN-009507513-2407CHN012049

PATIENT
  Age: 77 Year
  Sex: Female
  Weight: 51 kg

DRUGS (1)
  1. CILASTATIN SODIUM\IMIPENEM [Suspect]
     Active Substance: CILASTATIN SODIUM\IMIPENEM
     Indication: Anti-infective therapy
     Dosage: 1 GRAM, Q8H
     Route: 041
     Dates: start: 20240701, end: 20240707

REACTIONS (5)
  - Epilepsy [Recovering/Resolving]
  - Listless [Unknown]
  - Pallor [Unknown]
  - Back pain [Unknown]
  - Osteoporosis [Unknown]

NARRATIVE: CASE EVENT DATE: 20240701
